FAERS Safety Report 17599269 (Version 1)
Quarter: 2020Q1

REPORT INFORMATION
  Report Type: Spontaneous
  Country: FR (occurrence: FR)
  Receive Date: 20200330
  Receipt Date: 20200330
  Transmission Date: 20200409
  Serious: Yes (Hospitalization)
  Sender: FDA-Public Use
  Company Number: FR-SA-2020SA072009

PATIENT
  Age: 65 Year
  Sex: Female
  Weight: 65 kg

DRUGS (7)
  1. KARDEGIC [Suspect]
     Active Substance: ASPIRIN DL-LYSINE
     Indication: CEREBROVASCULAR ACCIDENT
     Route: 048
     Dates: start: 201703, end: 20200207
  2. STILNOX [Suspect]
     Active Substance: ZOLPIDEM TARTRATE
     Indication: INSOMNIA
     Route: 048
  3. ATORVASTATIN [Suspect]
     Active Substance: ATORVASTATIN
     Indication: CEREBROVASCULAR ACCIDENT
     Route: 048
     Dates: start: 201703, end: 20200121
  4. NICOTINE. [Suspect]
     Active Substance: NICOTINE
     Indication: EX-TOBACCO USER
     Route: 048
     Dates: start: 2000, end: 20200110
  5. FOLIC ACID. [Suspect]
     Active Substance: FOLIC ACID
     Indication: VITAMIN B COMPLEX DEFICIENCY
     Dosage: 10 MG, QD
     Route: 048
  6. BISOPROLOL HEMIFUMARATE [Suspect]
     Active Substance: BISOPROLOL FUMARATE
     Indication: HYPERTENSION
     Route: 048
  7. RAMIPRIL. [Suspect]
     Active Substance: RAMIPRIL
     Indication: HYPERTENSION
     Dosage: 2.5 MG, QD
     Route: 048

REACTIONS (3)
  - Loss of proprioception [Not Recovered/Not Resolved]
  - Axonal neuropathy [Not Recovered/Not Resolved]
  - Paraesthesia [Not Recovered/Not Resolved]

NARRATIVE: CASE EVENT DATE: 201908
